FAERS Safety Report 15755172 (Version 1)
Quarter: 2018Q4

REPORT INFORMATION
  Report Type: Report from Study
  Country: SG (occurrence: SG)
  Receive Date: 20181224
  Receipt Date: 20181224
  Transmission Date: 20190205
  Serious: Yes (Hospitalization)
  Sender: FDA-Public Use
  Company Number: SG-ROCHE-2229216

PATIENT
  Age: 62 Year
  Sex: Male
  Weight: 98.3 kg

DRUGS (14)
  1. OXALIPLATIN. [Suspect]
     Active Substance: OXALIPLATIN
     Indication: COLORECTAL CANCER
     Route: 042
     Dates: start: 20180112, end: 20180510
  2. BEVACIZUMAB. [Suspect]
     Active Substance: BEVACIZUMAB
     Indication: COLORECTAL CANCER
     Route: 042
     Dates: start: 20180112, end: 20180731
  3. LOPERAMIDE [Concomitant]
     Active Substance: LOPERAMIDE
     Route: 048
     Dates: start: 20180112
  4. LACTULOSE. [Concomitant]
     Active Substance: LACTULOSE
     Route: 048
     Dates: start: 20180110
  5. QV CREAM [Concomitant]
     Route: 065
     Dates: start: 20180110
  6. DIPHENHYDRAMINE. [Concomitant]
     Active Substance: DIPHENHYDRAMINE
     Route: 065
     Dates: start: 20180126, end: 20180126
  7. FLUOROURACIL. [Suspect]
     Active Substance: FLUOROURACIL
     Indication: DNA MISMATCH REPAIR PROTEIN GENE MUTATION
     Route: 042
     Dates: start: 20180112, end: 20180927
  8. LEUCOVORIN. [Suspect]
     Active Substance: LEUCOVORIN
     Indication: DNA MISMATCH REPAIR PROTEIN GENE MUTATION
     Route: 042
     Dates: start: 20180112, end: 20180731
  9. MEDIJEL [Concomitant]
     Route: 065
     Dates: start: 20180110
  10. OMEPRAZOLE. [Concomitant]
     Active Substance: OMEPRAZOLE
     Route: 065
     Dates: start: 20180125, end: 20180813
  11. ONDANSETRON [Concomitant]
     Active Substance: ONDANSETRON
     Route: 065
     Dates: start: 20180110
  12. PARACETAMOL [Concomitant]
     Active Substance: ACETAMINOPHEN
     Route: 065
     Dates: start: 20180126, end: 20180126
  13. AKYNZEO [Concomitant]
     Active Substance: NETUPITANT\PALONOSETRON HYDROCHLORIDE
     Route: 065
     Dates: start: 20180126, end: 20180126
  14. MAXOLON [Concomitant]
     Active Substance: METOCLOPRAMIDE HYDROCHLORIDE
     Route: 065
     Dates: start: 20180110

REACTIONS (2)
  - Urosepsis [Unknown]
  - Faecal volume increased [Unknown]

NARRATIVE: CASE EVENT DATE: 20180202
